FAERS Safety Report 25378794 (Version 1)
Quarter: 2025Q2

REPORT INFORMATION
  Report Type: Spontaneous
  Country: AU (occurrence: AU)
  Receive Date: 20250530
  Receipt Date: 20250530
  Transmission Date: 20250717
  Serious: Yes (Other)
  Sender: ORGANON
  Company Number: None

PATIENT
  Age: 9 Year
  Sex: Female

DRUGS (3)
  1. MONTELUKAST SODIUM [Suspect]
     Active Substance: MONTELUKAST SODIUM
     Indication: Asthma
  2. FLUTICASONE PROPIONATE [Concomitant]
     Active Substance: FLUTICASONE PROPIONATE
     Indication: Prophylaxis
  3. VYVANSE [Concomitant]
     Active Substance: LISDEXAMFETAMINE DIMESYLATE
     Indication: Attention deficit hyperactivity disorder

REACTIONS (13)
  - Angina pectoris [Unknown]
  - Abnormal dreams [Unknown]
  - Aggression [Unknown]
  - Agitation [Unknown]
  - Mood altered [Unknown]
  - Behaviour disorder [Unknown]
  - Depression [Unknown]
  - Epistaxis [Recovered/Resolved]
  - Fatigue [Unknown]
  - Nightmare [Unknown]
  - Palpitations [Unknown]
  - Sleep disorder [Unknown]
  - Product ineffective [Unknown]

NARRATIVE: CASE EVENT DATE: 20250107
